FAERS Safety Report 5709396-1 (Version None)
Quarter: 2008Q2

REPORT INFORMATION
  Report Type: 
  Country: None (occurrence: None)
  Receive Date: 20080417
  Receipt Date: 20080408
  Transmission Date: 20081010
  Serious: No
  Sender: FDA-Public Use
  Company Number: APP200800272

PATIENT
  Age: 36 Year
  Sex: Female

DRUGS (9)
  1. HEPARIN SODIUM INJECTION [Suspect]
     Indication: PERITONEAL DIALYSIS
     Dosage: 2000 USP UNITS, PER 2.5 LITER DIANEAL SOLUTION 4XDAY, INTRAPERITONEAL
     Route: 033
     Dates: start: 20080403, end: 20080403
  2. EPOGEN [Concomitant]
  3. PREDNISONE TAB [Concomitant]
  4. RENAGEL [Concomitant]
  5. LABETOLOL [Concomitant]
  6. NEPHRO CAP [Concomitant]
  7. ZEMPLAR [Concomitant]
  8. COUMADIN [Concomitant]
  9. DIANEAL [Concomitant]

REACTIONS (3)
  - RASH ERYTHEMATOUS [None]
  - RASH PAPULAR [None]
  - RASH PRURITIC [None]
